APPROVED DRUG PRODUCT: VOSEVI
Active Ingredient: SOFOSBUVIR; VELPATASVIR; VOXILAPREVIR
Strength: 400MG;100MG;100MG
Dosage Form/Route: TABLET;ORAL
Application: N209195 | Product #001
Applicant: GILEAD SCIENCES INC
Approved: Jul 18, 2017 | RLD: Yes | RS: Yes | Type: RX

PATENTS:
Patent 8940718 | Expires: Nov 16, 2032
Patent 8575135 | Expires: Nov 16, 2032
Patent 8921341 | Expires: Nov 16, 2032
Patent 8921341 | Expires: Nov 16, 2032
Patent 7964580 | Expires: Mar 26, 2029
Patent 7964580 | Expires: Mar 26, 2029
Patent 8618076 | Expires: Dec 11, 2030
Patent 9085573 | Expires: Mar 21, 2028
Patent 9085573 | Expires: Mar 21, 2028
Patent 8334270 | Expires: Mar 21, 2028
Patent 8889159 | Expires: Mar 26, 2029
Patent 9284342 | Expires: Sep 13, 2030
Patent 9284342 | Expires: Sep 13, 2030
Patent 8580765 | Expires: Mar 21, 2028
Patent 8580765 | Expires: Mar 21, 2028
Patent 8735372 | Expires: Mar 21, 2028
Patent 8334270 | Expires: Mar 21, 2028
Patent 8575135 | Expires: Nov 16, 2032
Patent 8618076 | Expires: Dec 11, 2030
Patent 8735372 | Expires: Mar 21, 2028
Patent 8633309 | Expires: Mar 26, 2029
Patent 8889159 | Expires: Mar 26, 2029
Patent 8957046 | Expires: Mar 21, 2028
Patent 8957046 | Expires: Mar 21, 2028
Patent 11338007 | Expires: Jun 1, 2037
Patent 11338007 | Expires: Jun 1, 2037
Patent 8940718 | Expires: Nov 16, 2032
Patent 11116783 | Expires: Jan 30, 2034
Patent 11116783 | Expires: Jan 30, 2034
Patent 8633309 | Expires: Mar 26, 2029
Patent 9868745 | Expires: Nov 16, 2032
Patent 10912814 | Expires: Jun 1, 2037
Patent 9296782 | Expires: Jul 17, 2034
Patent 8580765*PED | Expires: Sep 21, 2028
Patent 8334270*PED | Expires: Sep 21, 2028
Patent 7964580*PED | Expires: Sep 26, 2029
Patent 8575135*PED | Expires: May 16, 2033
Patent 8618076*PED | Expires: Jun 11, 2031
Patent 8921341*PED | Expires: May 16, 2033
Patent 8735372*PED | Expires: Sep 21, 2028
Patent 8633309*PED | Expires: Sep 26, 2029
Patent 9085573*PED | Expires: Sep 21, 2028
Patent 8940718*PED | Expires: May 16, 2033
Patent 8889159*PED | Expires: Sep 26, 2029
Patent 9284342*PED | Expires: Mar 13, 2031
Patent 11338007*PED | Expires: Dec 1, 2037
Patent 11116783*PED | Expires: Jul 30, 2034